FAERS Safety Report 15554205 (Version 1)
Quarter: 2018Q4

REPORT INFORMATION
  Report Type: Spontaneous
  Country: US (occurrence: US)
  Receive Date: 20181026
  Receipt Date: 20181026
  Transmission Date: 20190205
  Serious: Yes (Other)
  Sender: FDA-Public Use
  Company Number: US-PFIZER INC-2018425391

PATIENT
  Age: 44 Year
  Sex: Female
  Weight: 50.35 kg

DRUGS (1)
  1. LYRICA [Suspect]
     Active Substance: PREGABALIN
     Dosage: UNK
     Dates: start: 2006

REACTIONS (6)
  - Weight increased [Unknown]
  - Malaise [Unknown]
  - Photophobia [Unknown]
  - Faeces pale [Unknown]
  - Hypertension [Unknown]
  - Depressed mood [Unknown]
